FAERS Safety Report 8174951-9 (Version None)
Quarter: 2012Q1

REPORT INFORMATION
  Report Type: 
  Country: None (occurrence: None)
  Receive Date: 20120229
  Receipt Date: 20111028
  Transmission Date: 20120608
  Serious: No
  Sender: FDA-Public Use
  Company Number: US-GLAXOSMITHKLINE-A0951764A

PATIENT
  Age: 64 Year
  Sex: Female

DRUGS (3)
  1. NONE [Concomitant]
  2. VALACYCLOVIR HYDROCHLORIDE [Suspect]
     Route: 065
  3. VALTREX [Suspect]
     Indication: HERPES VIRUS INFECTION
     Dosage: 500MG TWICE PER DAY
     Route: 065
     Dates: start: 20111001

REACTIONS (2)
  - PRODUCT QUALITY ISSUE [None]
  - HEADACHE [None]
